FAERS Safety Report 21562073 (Version 1)
Quarter: 2022Q4

REPORT INFORMATION
  Report Type: Spontaneous
  Country: US (occurrence: None)
  Receive Date: 20221105
  Receipt Date: 20221105
  Transmission Date: 20230113
  Serious: Yes (Other)
  Sender: FDA-Public Use
  Company Number: None

PATIENT
  Age: 56 Year
  Sex: Female
  Weight: 54 kg

DRUGS (2)
  1. NURTEC ODT [Suspect]
     Active Substance: RIMEGEPANT SULFATE
     Indication: Migraine
     Dosage: OTHER QUANTITY : 1 TABLET(S);?FREQUENCY : AS NEEDED;?
     Route: 048
     Dates: start: 20210920, end: 20220815
  2. Magnesium coenzyme B6 [Concomitant]

REACTIONS (5)
  - Rash pruritic [None]
  - Pruritus [None]
  - Skin burning sensation [None]
  - Erythema [None]
  - Dry skin [None]

NARRATIVE: CASE EVENT DATE: 20220815
